FAERS Safety Report 21989334 (Version 3)
Quarter: 2023Q1

REPORT INFORMATION
  Report Type: Spontaneous
  Country: US (occurrence: US)
  Receive Date: 20230214
  Receipt Date: 20230318
  Transmission Date: 20230418
  Serious: No
  Sender: FDA-Public Use
  Company Number: US-JNJFOC-20230218151

PATIENT
  Age: 69 Year
  Sex: Female
  Weight: 59.474 kg

DRUGS (2)
  1. STELARA [Suspect]
     Active Substance: USTEKINUMAB
     Indication: Product used for unknown indication
     Route: 058
  2. STELARA [Suspect]
     Active Substance: USTEKINUMAB

REACTIONS (4)
  - Syringe issue [Unknown]
  - Device leakage [Unknown]
  - Product dose omission issue [Unknown]
  - Accidental exposure to product [Unknown]
